FAERS Safety Report 25297518 (Version 1)
Quarter: 2025Q2

REPORT INFORMATION
  Report Type: Spontaneous
  Country: US (occurrence: US)
  Receive Date: 20250511
  Receipt Date: 20250511
  Transmission Date: 20250717
  Serious: Yes (Hospitalization, Other)
  Sender: BRISTOL-MYERS SQUIBB COMPANY
  Company Number: US-BRISTOL-MYERS SQUIBB COMPANY-2025-064154

PATIENT
  Age: 65 Year
  Sex: Female

DRUGS (3)
  1. REVLIMID [Suspect]
     Active Substance: LENALIDOMIDE
     Indication: Plasma cell myeloma
  2. REVLIMID [Suspect]
     Active Substance: LENALIDOMIDE
     Dosage: ONCE DAILY
     Route: 048
  3. REVLIMID [Suspect]
     Active Substance: LENALIDOMIDE
     Dosage: ONCE EVERY OTHER DAY
     Route: 048

REACTIONS (7)
  - Intentional product use issue [Unknown]
  - Fatigue [Recovering/Resolving]
  - Insurance issue [Unknown]
  - Pneumonia [Unknown]
  - Blood test abnormal [Unknown]
  - Product use issue [Unknown]
  - Therapy interrupted [Unknown]
